FAERS Safety Report 20564204 (Version 7)
Quarter: 2025Q1

REPORT INFORMATION
  Report Type: Spontaneous
  Country: US (occurrence: US)
  Receive Date: 20220308
  Receipt Date: 20250108
  Transmission Date: 20250409
  Serious: Yes (Disabling, Other)
  Sender: ORGANON
  Company Number: US-ORGANON-O2203USA000477

PATIENT
  Sex: Female
  Weight: 104.31 kg

DRUGS (9)
  1. SINGULAIR [Suspect]
     Active Substance: MONTELUKAST SODIUM
     Indication: Hypersensitivity
     Dosage: 10 MILLIGRAM, DAILY
     Route: 048
     Dates: start: 2010
  2. SINGULAIR [Suspect]
     Active Substance: MONTELUKAST SODIUM
     Route: 048
     Dates: start: 20151211, end: 2020
  3. TELMISARTAN AND HYDROCHLOROTHIAZIDE [Concomitant]
     Active Substance: HYDROCHLOROTHIAZIDE\TELMISARTAN
     Indication: Hypertension
  4. CELEBREX [Concomitant]
     Active Substance: CELECOXIB
     Indication: Inflammation
  5. OMEPRAZOLE [Concomitant]
     Active Substance: OMEPRAZOLE
     Indication: Gastrooesophageal reflux disease
  6. TIZANIDINE [Concomitant]
     Active Substance: TIZANIDINE
     Indication: Muscle relaxant therapy
  7. TRAMADOL [Concomitant]
     Active Substance: TRAMADOL
     Indication: Pain
  8. WEGOVY [Concomitant]
     Active Substance: SEMAGLUTIDE
     Indication: Weight decreased
  9. VALACYCLOVIR [Concomitant]
     Active Substance: VALACYCLOVIR HYDROCHLORIDE
     Indication: Antiviral treatment

REACTIONS (18)
  - Neuropsychological symptoms [Not Recovered/Not Resolved]
  - Migraine [Not Recovered/Not Resolved]
  - Major depression [Recovering/Resolving]
  - Post-traumatic stress disorder [Not Recovered/Not Resolved]
  - Bipolar I disorder [Unknown]
  - Anxiety [Not Recovered/Not Resolved]
  - Rash erythematous [Not Recovered/Not Resolved]
  - Trichotillomania [Unknown]
  - Binge eating [Recovering/Resolving]
  - Post-traumatic stress disorder [Unknown]
  - Insomnia [Recovering/Resolving]
  - Mood swings [Unknown]
  - Depressive symptom [Not Recovered/Not Resolved]
  - Nausea [Unknown]
  - Pollakiuria [Unknown]
  - Hyperphagia [Unknown]
  - Infection [Not Recovered/Not Resolved]
  - Feeling abnormal [Unknown]

NARRATIVE: CASE EVENT DATE: 20150101
